FAERS Safety Report 14433399 (Version 1)
Quarter: 2018Q1

REPORT INFORMATION
  Report Type: Spontaneous
  Country: US (occurrence: US)
  Receive Date: 20180124
  Receipt Date: 20180124
  Transmission Date: 20180509
  Serious: No
  Sender: FDA-Public Use
  Company Number: US-PCCINC-T201700509

PATIENT

DRUGS (3)
  1. BUPIVACAINE. [Concomitant]
     Active Substance: BUPIVACAINE
     Dosage: 35 MG/ML AT 22.7 MG/DAY
     Route: 037
  2. GABLOFEN [Suspect]
     Active Substance: BACLOFEN
     Indication: PAIN
     Dosage: 9.7 MCG/DAY
     Route: 037
     Dates: start: 20150703
  3. HYDROMORPHONE [Concomitant]
     Active Substance: HYDROMORPHONE
     Dosage: 7 MG/ML AT 4.5 MG/DAY
     Route: 037

REACTIONS (2)
  - Device issue [Unknown]
  - Medication error [Unknown]
